FAERS Safety Report 15557857 (Version 1)
Quarter: 2018Q4

REPORT INFORMATION
  Report Type: Spontaneous
  Country: FR (occurrence: FR)
  Receive Date: 20181027
  Receipt Date: 20181027
  Transmission Date: 20190205
  Serious: Yes (Other)
  Sender: FDA-Public Use
  Company Number: FR-009507513-1810FRA006775

PATIENT
  Age: 32 Year
  Sex: Female

DRUGS (3)
  1. NEXPLANON [Suspect]
     Active Substance: ETONOGESTREL
     Indication: CONTRACEPTION
     Dosage: UNK
     Route: 058
  2. MIFEGYNE [Suspect]
     Active Substance: MIFEPRISTONE
     Indication: ABORTION INDUCED
     Dosage: 200 MILLIGRAM, ONCE (IN TOTAL)
     Route: 048
     Dates: start: 20171005, end: 20171005
  3. CYTOTEC [Suspect]
     Active Substance: MISOPROSTOL
     Indication: ABORTION INDUCED
     Dosage: 600 MICROGRAM, ONCE (IN TOTAL)
     Route: 048
     Dates: start: 20171007, end: 20171007

REACTIONS (2)
  - Unwanted pregnancy [Not Recovered/Not Resolved]
  - Induced abortion failed [Not Recovered/Not Resolved]

NARRATIVE: CASE EVENT DATE: 20171007
